FAERS Safety Report 24046530 (Version 1)
Quarter: 2024Q3

REPORT INFORMATION
  Report Type: Spontaneous
  Country: US (occurrence: US)
  Receive Date: 20240703
  Receipt Date: 20240703
  Transmission Date: 20241017
  Serious: No
  Sender: SANOFI AVENTIS
  Company Number: US-SA-SAC20240628001010

PATIENT
  Age: 54 Year
  Sex: Female
  Weight: 91.8 kg

DRUGS (1)
  1. DUPIXENT [Suspect]
     Active Substance: DUPILUMAB
     Indication: Asthma
     Dosage: 200 MG, QOW
     Route: 058

REACTIONS (5)
  - Pain [Recovered/Resolved]
  - Carpal tunnel syndrome [Recovered/Resolved]
  - Nerve compression [Recovered/Resolved]
  - Cubital tunnel syndrome [Recovered/Resolved]
  - Thinking abnormal [Recovered/Resolved]
